FAERS Safety Report 8322988-9 (Version None)
Quarter: 2012Q2

REPORT INFORMATION
  Report Type: 
  Country: None (occurrence: None)
  Receive Date: 20120430
  Receipt Date: 20120416
  Transmission Date: 20120825
  Serious: Yes (Hospitalization, Other)
  Sender: FDA-Public Use
  Company Number: US-MYLANLABS-2008AL012004

PATIENT
  Age: 45 Year
  Sex: Female
  Weight: 100.93 kg

DRUGS (25)
  1. DARVOCET-N 50 [Concomitant]
  2. GLUCOPHAGE [Concomitant]
  3. GLUCOTROL [Concomitant]
  4. CELEBREX [Concomitant]
  5. IBUPROFEN [Concomitant]
  6. HYDROCHLOROTHIAZIDE [Concomitant]
  7. VIOXX [Concomitant]
  8. COUMADIN [Concomitant]
  9. DIGOXIN [Suspect]
     Indication: CARDIAC DISORDER
     Route: 048
     Dates: start: 19930630, end: 20080530
  10. PRAVACHOL [Concomitant]
  11. BUMEX [Concomitant]
  12. ZOLOFT [Concomitant]
  13. LISINOPRIL [Concomitant]
  14. PREMARIN [Concomitant]
  15. TOPROL-XL [Concomitant]
  16. DIFLUCAN [Concomitant]
  17. INSULIN [Concomitant]
  18. VASOTEC [Concomitant]
  19. MYCOSTATIN [Concomitant]
  20. POTASSIUM CHLORIDE [Concomitant]
  21. CIPROFLOXACIN [Concomitant]
  22. AUGMENTIN [Concomitant]
  23. LORTAB [Concomitant]
  24. NPH INSULIN [Concomitant]
  25. LIPITOR [Concomitant]

REACTIONS (65)
  - DIABETES MELLITUS [None]
  - LABORATORY TEST ABNORMAL [None]
  - MENISCUS LESION [None]
  - OBESITY [None]
  - PARAESTHESIA [None]
  - ILL-DEFINED DISORDER [None]
  - CEREBELLAR INFARCTION [None]
  - MITRAL VALVE INCOMPETENCE [None]
  - ABDOMINAL PAIN [None]
  - BREAST CYST [None]
  - DEPRESSION [None]
  - HYPOAESTHESIA ORAL [None]
  - NAUSEA [None]
  - THIRST [None]
  - INJURY [None]
  - BLOOD PRESSURE INCREASED [None]
  - POLYDIPSIA [None]
  - ARTHRALGIA [None]
  - ATAXIA [None]
  - ECHOCARDIOGRAM ABNORMAL [None]
  - EYE PRURITUS [None]
  - HYPONATRAEMIA [None]
  - LIVER FUNCTION TEST ABNORMAL [None]
  - MUSCULOSKELETAL CHEST PAIN [None]
  - PYREXIA [None]
  - GENERAL PHYSICAL HEALTH DETERIORATION [None]
  - ASTHENIA [None]
  - POLYURIA [None]
  - NYSTAGMUS [None]
  - EMBOLIC STROKE [None]
  - HYPERGLYCAEMIA [None]
  - BLOOD GLUCOSE INCREASED [None]
  - SINUSITIS [None]
  - SKIN CANDIDA [None]
  - VISION BLURRED [None]
  - LEFT VENTRICULAR HYPERTROPHY [None]
  - ARTHROSCOPY [None]
  - EAR PAIN [None]
  - FEELING ABNORMAL [None]
  - GAIT DISTURBANCE [None]
  - PARAESTHESIA ORAL [None]
  - OROPHARYNGEAL PAIN [None]
  - RENAL CYST [None]
  - CEREBROVASCULAR ACCIDENT [None]
  - HYPOAESTHESIA [None]
  - HYPERTENSION [None]
  - RENAL FAILURE [None]
  - CARDIAC MURMUR [None]
  - CHILLS [None]
  - HYPOKALAEMIA [None]
  - JOINT EFFUSION [None]
  - NUCLEAR MAGNETIC RESONANCE IMAGING ABNORMAL [None]
  - RHINORRHOEA [None]
  - CARDIAC DISORDER [None]
  - HEMIPLEGIA [None]
  - CONTUSION [None]
  - HAEMATURIA [None]
  - HEPATIC STEATOSIS [None]
  - HYPERLIPIDAEMIA [None]
  - DIZZINESS [None]
  - MALAISE [None]
  - ELECTROCARDIOGRAM ABNORMAL [None]
  - HEADACHE [None]
  - OSTEOARTHRITIS [None]
  - PRODUCTIVE COUGH [None]
